FAERS Safety Report 25941807 (Version 1)
Quarter: 2025Q4

REPORT INFORMATION
  Report Type: Spontaneous
  Country: KR (occurrence: KR)
  Receive Date: 20251020
  Receipt Date: 20251020
  Transmission Date: 20260117
  Serious: Yes (Other)
  Sender: Kenvue
  Company Number: KR-KENVUE-20251006513

PATIENT

DRUGS (6)
  1. TYLENOL 8HR [Suspect]
     Active Substance: ACETAMINOPHEN
     Indication: Product used for unknown indication
     Dosage: 1 DOSAGE FORM, 0.33 TIME A DAY
     Route: 065
     Dates: start: 20230603
  2. PELUBIPROFEN [Suspect]
     Active Substance: PELUBIPROFEN
     Indication: Product used for unknown indication
     Dosage: 1 DOSAGE FORM, 0.33 TIME A DAY
     Route: 065
     Dates: start: 20230603
  3. ACETYLCYSTEINE [Suspect]
     Active Substance: ACETYLCYSTEINE
     Indication: Product used for unknown indication
     Dosage: 1 DOSAGE FORM, 0.33 TIME A DAY
     Route: 065
     Dates: start: 20230603
  4. REBAMIPIDE [Suspect]
     Active Substance: REBAMIPIDE
     Indication: Product used for unknown indication
     Dosage: 1 DOSAGE FORM, 0.33 TIME A DAY
     Route: 065
     Dates: start: 20230603
  5. CHLORPHENIRAMINE MALEATE\DIHYDROCODEINE BITARTRATE\GUAIFENESIN\METHYLE [Suspect]
     Active Substance: CHLORPHENIRAMINE MALEATE\DIHYDROCODEINE BITARTRATE\GUAIFENESIN\METHYLEPHEDRINE HYDROCHLORIDE, (+/-)
     Indication: Product used for unknown indication
     Dosage: 2 DOSAGE FORM, 0.33 TIME A DAY
     Route: 065
     Dates: start: 20230603
  6. BEPOTASTINE BESYLATE [Suspect]
     Active Substance: BEPOTASTINE BESYLATE
     Indication: Product used for unknown indication
     Dosage: 1 DOSAGE FORM, 0.5 TIMES A DAY
     Route: 065
     Dates: start: 20230603

REACTIONS (1)
  - Seizure [Unknown]

NARRATIVE: CASE EVENT DATE: 20230603
